FAERS Safety Report 7600154-X (Version None)
Quarter: 2011Q3

REPORT INFORMATION
  Report Type: 
  Country: None (occurrence: None)
  Receive Date: 20110711
  Receipt Date: 20110629
  Transmission Date: 20111222
  Serious: Yes (Hospitalization)
  Sender: FDA-Public Use
  Company Number: PHHY2011US58356

PATIENT
  Age: 47 Year
  Sex: Male
  Weight: 98 kg

DRUGS (4)
  1. INTERFERON BETA-1B [Suspect]
     Dosage: 0.3 MG, QOD
     Route: 058
     Dates: start: 20080201
  2. LISINOPRIL [Concomitant]
     Indication: HYPERTENSION
     Dosage: 5 MG, DAILY
     Route: 048
     Dates: start: 20080101
  3. VIAGRA [Concomitant]
     Indication: ERECTILE DYSFUNCTION
     Dosage: 5 MG,DAILY
     Dates: start: 20080101
  4. ZANAFLEX [Concomitant]
     Indication: MUSCLE SPASMS
     Dosage: 4 MG, PRN
     Dates: start: 20110601

REACTIONS (2)
  - NIGHT SWEATS [None]
  - BLOOD PRESSURE FLUCTUATION [None]
